FAERS Safety Report 21963065 (Version 1)
Quarter: 2023Q1

REPORT INFORMATION
  Report Type: Spontaneous
  Country: US (occurrence: None)
  Receive Date: 20230205
  Receipt Date: 20230205
  Transmission Date: 20230417
  Serious: No
  Sender: FDA-Public Use
  Company Number: None

PATIENT
  Age: 15 Year
  Sex: Female
  Weight: 49.05 kg

DRUGS (1)
  1. BLINK GEL TEARS [Suspect]
     Active Substance: POLYETHYLENE GLYCOL 400
     Route: 047
     Dates: start: 20230204, end: 20230205

REACTIONS (2)
  - Eyelid oedema [None]
  - Swelling of eyelid [None]

NARRATIVE: CASE EVENT DATE: 20230205
